FAERS Safety Report 21682009 (Version 1)
Quarter: 2022Q4

REPORT INFORMATION
  Report Type: Spontaneous
  Country: RU (occurrence: None)
  Receive Date: 20221205
  Receipt Date: 20221205
  Transmission Date: 20230113
  Serious: Yes (Life-Threatening)
  Sender: FDA-Public Use
  Company Number: 2022A396702

PATIENT
  Sex: Male

DRUGS (3)
  1. NEXIUM [Suspect]
     Active Substance: ESOMEPRAZOLE MAGNESIUM
     Indication: Gastritis erosive
     Dosage: 20.0MG UNKNOWN
     Route: 048
  2. MIKRAZYM [Concomitant]
     Route: 048
  3. MEBEVERINE [Concomitant]
     Active Substance: MEBEVERINE
     Route: 048

REACTIONS (2)
  - Tachycardia [Unknown]
  - Off label use [Unknown]
